FAERS Safety Report 8264571-X (Version None)
Quarter: 2012Q2

REPORT INFORMATION
  Report Type: 
  Country: None (occurrence: None)
  Receive Date: 20120403
  Receipt Date: 20120327
  Transmission Date: 20120825
  Serious: Yes (Hospitalization)
  Sender: FDA-Public Use
  Company Number: TPA2012A01699

PATIENT
  Sex: Female

DRUGS (1)
  1. PIOGLITAZONE HCL [Suspect]
     Indication: CARDIOVASCULAR EVENT PROPHYLAXIS
     Dosage: BLINDED

REACTIONS (2)
  - FALL [None]
  - LUMBAR VERTEBRAL FRACTURE [None]
